FAERS Safety Report 8905822 (Version 1)
Quarter: 2012Q4

REPORT INFORMATION
  Report Type: 
  Country: US (occurrence: US)
  Receive Date: 20121109
  Receipt Date: 20121109
  Transmission Date: 20130627
  Serious: No
  Sender: FDA-Public Use
  Company Number: US-B.I. PHARMACEUTICALS,INC./RIDGEFIELD-2012-BP-27404BP

PATIENT
  Age: 39 Year
  Sex: Male
  Weight: 118 kg

DRUGS (5)
  1. MIRAPEX [Suspect]
     Indication: HYPERTENSION
     Dosage: 0.25 mg
     Route: 048
     Dates: start: 2012
  2. ACCUPRIL [Concomitant]
     Indication: HYPERTENSION
     Dosage: 40 mg
     Route: 048
     Dates: start: 2012
  3. NEXIUM [Concomitant]
     Indication: GASTROOESOPHAGEAL REFLUX DISEASE
     Dosage: 40 mg
     Route: 048
     Dates: start: 1998
  4. CEFDINIR [Concomitant]
     Indication: SINUSITIS
     Dosage: 600 mg
     Route: 048
     Dates: start: 2012
  5. HYDROCODONE [Concomitant]
     Indication: BACK PAIN
     Route: 048

REACTIONS (2)
  - Back pain [Not Recovered/Not Resolved]
  - Arthralgia [Not Recovered/Not Resolved]
